FAERS Safety Report 7530664-5 (Version None)
Quarter: 2011Q2

REPORT INFORMATION
  Report Type: 
  Country: None (occurrence: None)
  Receive Date: 20110607
  Receipt Date: 20110531
  Transmission Date: 20111010
  Serious: Yes (Other)
  Sender: FDA-Public Use
  Company Number: EE-BAYER-2011-046255

PATIENT
  Age: 57 Year
  Sex: Female

DRUGS (1)
  1. ULTRAVIST 150 [Suspect]
     Indication: COMPUTERISED TOMOGRAM
     Dosage: 85 ML, ONCE
     Dates: start: 20110517, end: 20110517

REACTIONS (2)
  - RASH PAPULAR [None]
  - FLUSHING [None]
